FAERS Safety Report 8174873-3 (Version None)
Quarter: 2012Q1

REPORT INFORMATION
  Report Type: 
  Country: None (occurrence: None)
  Receive Date: 20120229
  Receipt Date: 20110328
  Transmission Date: 20120608
  Serious: No
  Sender: FDA-Public Use
  Company Number: US-GLAXOSMITHKLINE-A0920313A

PATIENT
  Age: 39 Year
  Sex: Female

DRUGS (2)
  1. VALTREX [Suspect]
     Indication: HERPES ZOSTER
     Dosage: 500MG AS REQUIRED
     Route: 048
     Dates: start: 19970101
  2. ZYRTEC [Concomitant]

REACTIONS (2)
  - HEADACHE [None]
  - ABDOMINAL PAIN UPPER [None]
